FAERS Safety Report 21307462 (Version 2)
Quarter: 2022Q3

REPORT INFORMATION
  Report Type: Spontaneous
  Country: US (occurrence: US)
  Receive Date: 20220908
  Receipt Date: 20220929
  Transmission Date: 20221026
  Serious: No
  Sender: FDA-Public Use
  Company Number: US-PFIZER INC-PV202200058604

PATIENT
  Age: 71 Year

DRUGS (2)
  1. SKELAXIN [Suspect]
     Active Substance: METAXALONE
     Indication: Pain
     Dosage: 4 MG, 1 TABLET EVERY 12 HOURS AS NEEDED FOR MUSCLE SPASMS
  2. SKELAXIN [Suspect]
     Active Substance: METAXALONE
     Indication: Muscle spasms

REACTIONS (3)
  - Product prescribing error [Unknown]
  - Off label use [Unknown]
  - Product use issue [Unknown]
